FAERS Safety Report 9080722 (Version 1)
Quarter: 2013Q1

REPORT INFORMATION
  Report Type: Report from Study
  Country: US (occurrence: US)
  Receive Date: 20130130
  Receipt Date: 20130130
  Transmission Date: 20140127
  Serious: No
  Sender: FDA-Public Use
  Company Number: US-ABBOTT-12P-163-0968049-00

PATIENT
  Age: 54 Year
  Sex: Female

DRUGS (1)
  1. HUMIRA 40 MG/ 0.8 ML PRE-FILLED SYRINGE [Suspect]
     Indication: PSORIATIC ARTHROPATHY
     Route: 058
     Dates: start: 201112

REACTIONS (9)
  - Influenza like illness [Unknown]
  - Decreased activity [Unknown]
  - Hyperhidrosis [Unknown]
  - Headache [Unknown]
  - Oedema [Unknown]
  - Photopsia [Unknown]
  - Dizziness [Unknown]
  - Dyspnoea [Unknown]
  - Pain [Unknown]
